FAERS Safety Report 11496158 (Version 3)
Quarter: 2020Q1

REPORT INFORMATION
  Report Type: Spontaneous
  Country: NO (occurrence: NO)
  Receive Date: 20150911
  Receipt Date: 20200318
  Transmission Date: 20200409
  Serious: Yes (Death, Other)
  Sender: FDA-Public Use
  Company Number: NO-MYLANLABS-2015M1029767

PATIENT
  Age: 46 Year
  Sex: Male

DRUGS (15)
  1. FILGRASTIM [Suspect]
     Active Substance: FILGRASTIM
     Indication: PERIPHERAL BLOOD STEM CELL APHERESIS
     Dosage: 10 ?G/KG, IN 1 DAY
     Route: 065
  2. CYTARABINE. [Suspect]
     Active Substance: CYTARABINE
     Indication: PRECURSOR T-LYMPHOBLASTIC LYMPHOMA/LEUKAEMIA
     Dosage: THE INTENSIFIED HAMMERSMITH REGIMEN (INTRATHECAL TREATMENT-PHASE) ADMINISTERED ON DAYS: 78, 92, 106
     Route: 037
  3. MERCAPTOPURINE. [Suspect]
     Active Substance: MERCAPTOPURINE
     Indication: PRECURSOR T-LYMPHOBLASTIC LYMPHOMA/LEUKAEMIA
     Dosage: THE INTENSIFIED HAMMERSMITH REGIMEN (EARLY CONSOLIDATION-PHASE) ADMINISTERED ON DAYS: 64 - 111
     Route: 042
  4. METHOTREXATE. [Suspect]
     Active Substance: METHOTREXATE
     Dosage: THE INTENSIFIED HAMMERSMITH REGIMEN (INTRATHECAL TREATMENT-PHASE) ON DAYS: 15,29,43,46
     Route: 037
  5. ASPARAGINASE [Suspect]
     Active Substance: ASPARAGINASE
     Indication: PRECURSOR T-LYMPHOBLASTIC LYMPHOMA/LEUKAEMIA
     Dosage: THE INTENSIFIED HAMMERSMITH REGIMEN (INDUCTION-PHASE) ADMINISTERED ON DAYS: 8 - 21
     Route: 042
  6. DAUNORUBICIN [Suspect]
     Active Substance: DAUNORUBICIN
     Indication: PRECURSOR T-LYMPHOBLASTIC LYMPHOMA/LEUKAEMIA
     Dosage: THE INTENSIFIED HAMMERSMITH REGIMEN (EARLY CONSOLIDATION-PHASE) ADMINISTERED ON DAYS: 43, 45, 47
     Route: 042
  7. CYCLOPHOSPHAMIDE. [Suspect]
     Active Substance: CYCLOPHOSPHAMIDE
     Indication: PRECURSOR T-LYMPHOBLASTIC LYMPHOMA/LEUKAEMIA
     Dosage: THE INTENSIFIED HAMMERSMITH REGIMEN (INDUCTION-PHASE) ADMINISTERED ON DAYS: 15, 22, 29
     Route: 042
  8. PREDNISONE. [Suspect]
     Active Substance: PREDNISONE
     Indication: PRECURSOR T-LYMPHOBLASTIC LYMPHOMA/LEUKAEMIA
     Dosage: THE INTENSIFIED HAMMERSMITH REGIMEN (INDUCTION-PHASE)
     Route: 048
  9. CYTARABINE. [Suspect]
     Active Substance: CYTARABINE
     Dosage: THE INTENSIFIED HAMMERSMITH REGIMEN (EARLY CONSOLIDATION-PHASE) ADMINISTERED ON DAYS: 43 - 47
     Route: 042
  10. PREDNISOLONE. [Suspect]
     Active Substance: PREDNISOLONE
     Indication: PRECURSOR T-LYMPHOBLASTIC LYMPHOMA/LEUKAEMIA
     Dosage: THE INTENSIFIED HAMMERSMITH REGIMEN (INDUCTION-PHASE) ADMINISTERED ON DAYS: 1 - 29, TAPER TO DAY 35
     Route: 048
  11. METHOTREXATE. [Suspect]
     Active Substance: METHOTREXATE
     Indication: PRECURSOR T-LYMPHOBLASTIC LYMPHOMA/LEUKAEMIA
     Dosage: THE INTENSIFIED HAMMERSMITH REGIMEN (EARLY CONSOLIDATION-PHASE) ADMINISTERED ON DAYS: 64, 78
     Route: 042
  12. ADRIACIN [Suspect]
     Active Substance: DOXORUBICIN HYDROCHLORIDE
     Indication: PRECURSOR T-LYMPHOBLASTIC LYMPHOMA/LEUKAEMIA
     Dosage: THE INTENSIFIED HAMMERSMITH REGIMEN (INDUCTION-PHASE) ADMINISTERED ON DAYS: 8, 15, 22
     Route: 042
  13. THIOGUANINE [Suspect]
     Active Substance: THIOGUANINE
     Indication: PRECURSOR T-LYMPHOBLASTIC LYMPHOMA/LEUKAEMIA
     Dosage: THE INTENSIFIED HAMMERSMITH REGIMEN (EARLY CONSOLIDATION-PHASE) ADMINISTERED ON DAYS: 43 - 47
     Route: 042
  14. PREDNISONE. [Suspect]
     Active Substance: PREDNISONE
     Indication: PRECURSOR T-LYMPHOBLASTIC LYMPHOMA/LEUKAEMIA
     Dosage: 10 MG, UNK
     Route: 037
  15. VINCRISTINE [Suspect]
     Active Substance: VINCRISTINE
     Indication: PRECURSOR T-LYMPHOBLASTIC LYMPHOMA/LEUKAEMIA
     Dosage: MAXIMUM 2.0 MG; THE INTENSIFIED HAMMERSMITH REGIMEN (INDUCTION-PHASE) ADMINISTERED ON DAYS: 1,8,15,2
     Route: 042

REACTIONS (4)
  - Febrile neutropenia [Unknown]
  - Multiple organ dysfunction syndrome [Fatal]
  - Venoocclusive disease [Fatal]
  - Haematotoxicity [Unknown]
